FAERS Safety Report 13762447 (Version 8)
Quarter: 2018Q1

REPORT INFORMATION
  Report Type: Spontaneous
  Country: US (occurrence: US)
  Receive Date: 20170718
  Receipt Date: 20180205
  Transmission Date: 20180508
  Serious: No
  Sender: FDA-Public Use
  Company Number: US-PFIZER INC-2017307491

PATIENT
  Age: 44 Year
  Sex: Female
  Weight: 88 kg

DRUGS (17)
  1. XANAX [Concomitant]
     Active Substance: ALPRAZOLAM
     Dosage: UNK
  2. PROZAC [Concomitant]
     Active Substance: FLUOXETINE HYDROCHLORIDE
     Dosage: UNK
  3. VITAMIN D [Concomitant]
     Active Substance: CHOLECALCIFEROL
     Dosage: UNK
  4. SULFASALAZINE. [Concomitant]
     Active Substance: SULFASALAZINE
     Dosage: UNK
  5. XELJANZ XR [Suspect]
     Active Substance: TOFACITINIB CITRATE
     Dosage: 11 MG, 1X/DAY
     Route: 048
     Dates: end: 2017
  6. TIZANIDINE. [Concomitant]
     Active Substance: TIZANIDINE
     Dosage: UNK
  7. XELJANZ XR [Suspect]
     Active Substance: TOFACITINIB CITRATE
     Indication: RHEUMATOID ARTHRITIS
     Dosage: 11 MG, 1X/DAY
     Route: 048
     Dates: start: 20170516
  8. XELJANZ XR [Suspect]
     Active Substance: TOFACITINIB CITRATE
     Dosage: 11 MG, 1X/DAY
     Route: 048
     Dates: start: 20170718
  9. OMEPRAZOLE. [Concomitant]
     Active Substance: OMEPRAZOLE
     Dosage: UNK
  10. NEURONTIN [Concomitant]
     Active Substance: GABAPENTIN
     Dosage: UNK
  11. METHADONE [Concomitant]
     Active Substance: METHADONE HYDROCHLORIDE
     Dosage: UNK
  12. SUMATRIPTAN. [Concomitant]
     Active Substance: SUMATRIPTAN
     Dosage: UNK
  13. XELJANZ XR [Suspect]
     Active Substance: TOFACITINIB CITRATE
     Dosage: 5.5 MG, UNK
     Route: 048
  14. FLONASE [Concomitant]
     Active Substance: FLUTICASONE PROPIONATE
     Dosage: UNK
  15. LEVOTHYROXINE. [Concomitant]
     Active Substance: LEVOTHYROXINE
     Dosage: UNK
  16. VICODIN [Concomitant]
     Active Substance: ACETAMINOPHEN\HYDROCODONE BITARTRATE
     Dosage: UNK
  17. TOPAMAX [Concomitant]
     Active Substance: TOPIRAMATE
     Dosage: UNK

REACTIONS (8)
  - Herpes zoster [Recovered/Resolved]
  - Urticaria [Unknown]
  - Immune system disorder [Unknown]
  - Decreased immune responsiveness [Unknown]
  - Headache [Unknown]
  - Perioral dermatitis [Recovering/Resolving]
  - Drug hypersensitivity [Recovering/Resolving]
  - Wrong technique in product usage process [Unknown]

NARRATIVE: CASE EVENT DATE: 2017
